FAERS Safety Report 8484471-X (Version None)
Quarter: 2012Q3

REPORT INFORMATION
  Report Type: 
  Country: None (occurrence: None)
  Receive Date: 20120703
  Receipt Date: 20120628
  Transmission Date: 20120928
  Serious: Yes (Other)
  Sender: FDA-Public Use
  Company Number: PHHY2009CA56002

PATIENT
  Sex: Female

DRUGS (5)
  1. CHEMOTHERAPEUTICS,OTHER [Concomitant]
  2. SANDOSTATIN LAR [Suspect]
     Dosage: 30 MG, QMO
     Route: 030
  3. SANDOSTATIN LAR [Suspect]
     Indication: ACROMEGALY
     Dosage: 20 MG EVERY 4 WEEKS
     Route: 030
     Dates: start: 20091119
  4. SANDOSTATIN LAR [Suspect]
     Dosage: 30 MG, EVERY 4 WEEKS
     Route: 030
     Dates: start: 20100310
  5. SANDOSTATIN LAR [Suspect]
     Dosage: 30 MG, EVERY 4 WEEKS
     Route: 030
     Dates: start: 20091119

REACTIONS (15)
  - HYPOAESTHESIA [None]
  - HOT FLUSH [None]
  - CHILLS [None]
  - HEART RATE DECREASED [None]
  - BLOOD PRESSURE DIASTOLIC DECREASED [None]
  - OEDEMA PERIPHERAL [None]
  - HYPERHIDROSIS [None]
  - ANXIETY [None]
  - BREAST CANCER [None]
  - PAIN [None]
  - BREAST MASS [None]
  - METASTASIS [None]
  - BLOOD PRESSURE SYSTOLIC INCREASED [None]
  - GASTROINTESTINAL SOUNDS ABNORMAL [None]
  - DIARRHOEA [None]
